FAERS Safety Report 24535595 (Version 1)
Quarter: 2024Q4

REPORT INFORMATION
  Report Type: Spontaneous
  Country: US (occurrence: None)
  Receive Date: 20241022
  Receipt Date: 20241022
  Transmission Date: 20250114
  Serious: Yes (Other)
  Sender: Public
  Company Number: None

PATIENT
  Age: 49 Year
  Sex: Female
  Weight: 57.6 kg

DRUGS (1)
  1. MIRENA [Suspect]
     Active Substance: LEVONORGESTREL
     Indication: Contraception
     Dates: start: 20090601, end: 20230428

REACTIONS (2)
  - Intraductal proliferative breast lesion [None]
  - Hormone receptor positive breast cancer [None]

NARRATIVE: CASE EVENT DATE: 20240524
